FAERS Safety Report 4604821-1 (Version None)
Quarter: 2005Q2

REPORT INFORMATION
  Report Type: 
  Country: None (occurrence: None)
  Receive Date: 20050224
  Receipt Date: 20040420
  Transmission Date: 20051028
  Serious: Yes (Hospitalization)
  Sender: FDA-Public Use
  Company Number: 04P-163-0258668-00

PATIENT
  Age: 65 Year
  Sex: Female

DRUGS (1)
  1. DILAUDID [Suspect]
     Indication: PAIN
     Dosage: 0.2 MG/ML PER HR, LIMIT 1.2 MG PER 4 HOURS
     Dates: start: 20040101, end: 20040406

REACTIONS (4)
  - COMA [None]
  - DRUG ADMINISTRATION ERROR [None]
  - OVERDOSE [None]
  - RESPIRATORY RATE DECREASED [None]
